FAERS Safety Report 15477430 (Version 1)
Quarter: 2018Q4

REPORT INFORMATION
  Report Type: Report from Study
  Country: None (occurrence: US)
  Receive Date: 20181009
  Receipt Date: 20181009
  Transmission Date: 20190205
  Serious: Yes (Hospitalization)
  Sender: FDA-Public Use
  Company Number: US-ABBVIE-18K-163-2506930-00

PATIENT
  Age: 44 Year
  Sex: Female
  Weight: 62.65 kg

DRUGS (2)
  1. HUMIRA [Suspect]
     Active Substance: ADALIMUMAB
     Indication: CROHN^S DISEASE
     Route: 058
     Dates: start: 201801, end: 201809
  2. HUMIRA [Suspect]
     Active Substance: ADALIMUMAB
     Route: 058
     Dates: start: 20181001

REACTIONS (3)
  - Joint range of motion decreased [Recovered/Resolved]
  - Pain [Recovering/Resolving]
  - Incisional hernia [Recovering/Resolving]

NARRATIVE: CASE EVENT DATE: 201809
